FAERS Safety Report 16727040 (Version 4)
Quarter: 2019Q3

REPORT INFORMATION
  Report Type: Report from Study
  Country: BR (occurrence: BR)
  Receive Date: 20190821
  Receipt Date: 20190826
  Transmission Date: 20191005
  Serious: Yes (Other)
  Sender: FDA-Public Use
  Company Number: PHHY2019BR190490

PATIENT
  Sex: Female

DRUGS (2)
  1. ENTRESTO [Suspect]
     Active Substance: SACUBITRIL\VALSARTAN
     Indication: PRODUCT USED FOR UNKNOWN INDICATION
     Dosage: 50 MG(SACUBITRIL 24MG AND VALSARTAN 26MG), UNK
     Route: 065
  2. CARVEDILOL. [Suspect]
     Active Substance: CARVEDILOL
     Indication: PRODUCT USED FOR UNKNOWN INDICATION
     Dosage: UNK
     Route: 065

REACTIONS (11)
  - Dysuria [Unknown]
  - Cardiac valve disease [Unknown]
  - Congestive cardiomyopathy [Unknown]
  - Renal disorder [Unknown]
  - Swelling [Unknown]
  - Cystitis [Unknown]
  - Vomiting [Unknown]
  - Fluid retention [Unknown]
  - Ejection fraction decreased [Unknown]
  - Diabetes mellitus [Unknown]
  - Lung disorder [Unknown]

NARRATIVE: CASE EVENT DATE: 2018
